FAERS Safety Report 17327124 (Version 2)
Quarter: 2020Q1

REPORT INFORMATION
  Report Type: Report from Study
  Country: US (occurrence: US)
  Receive Date: 20200127
  Receipt Date: 20200309
  Transmission Date: 20200409
  Serious: Yes (Disabling)
  Sender: FDA-Public Use
  Company Number: US-PFIZER INC-2020026290

PATIENT
  Age: 86 Year
  Sex: Female
  Weight: 77.7 kg

DRUGS (5)
  1. CYTARABINE. [Suspect]
     Active Substance: CYTARABINE
     Indication: ACUTE MYELOID LEUKAEMIA
     Dosage: 181 MG, DAILY BY CONTINUOUS INFUSION
     Route: 041
     Dates: start: 20190620, end: 20190627
  2. BLINDED PF-04449913 [Suspect]
     Active Substance: GLASDEGIB
     Indication: ACUTE MYELOID LEUKAEMIA
     Dosage: UNK UNK, 1X/DAY CONTINUOUS
     Route: 048
     Dates: start: 20190620, end: 20190815
  3. BLINDED GLASDEGIB [Suspect]
     Active Substance: GLASDEGIB
     Indication: ACUTE MYELOID LEUKAEMIA
     Dosage: UNK UNK, 1X/DAY CONTINUOUS
     Route: 048
     Dates: start: 20190620, end: 20190815
  4. DAUNORUBICIN [Suspect]
     Active Substance: DAUNORUBICIN
     Indication: ACUTE MYELOID LEUKAEMIA
     Dosage: 109 MG, DAILY BY CONTINUOUS INFUSION
     Route: 041
     Dates: start: 20190620, end: 20190623
  5. BLINDED PLACEBO [Suspect]
     Active Substance: INVESTIGATIONAL PRODUCT
     Indication: ACUTE MYELOID LEUKAEMIA
     Dosage: UNK UNK, 1X/DAY CONTINUOUS
     Route: 048
     Dates: start: 20190620, end: 20190815

REACTIONS (1)
  - Vision blurred [Recovered/Resolved]

NARRATIVE: CASE EVENT DATE: 20190628
